FAERS Safety Report 5869088-5 (Version None)
Quarter: 2008Q3

REPORT INFORMATION
  Report Type: 
  Country: None (occurrence: None)
  Receive Date: 20080903
  Receipt Date: 20080822
  Transmission Date: 20090109
  Serious: Yes (Other)
  Sender: FDA-Public Use
  Company Number: GB-AVENTIS-200710353EU

PATIENT
  Age: 74 Year
  Sex: Male

DRUGS (4)
  1. FUROSEMIDE [Suspect]
     Indication: HYPERTENSION
  2. VALSARTAN [Suspect]
     Indication: HYPERTENSION
  3. CANDESARTAN [Concomitant]
     Indication: HYPERTENSION
  4. AMLODIPINE [Concomitant]
     Indication: HYPERTENSION
     Dosage: DOSE: UNK

REACTIONS (5)
  - BLINDNESS [None]
  - DRUG INTERACTION [None]
  - HALLUCINATION, VISUAL [None]
  - HYPOPERFUSION [None]
  - RETINAL ARTERY OCCLUSION [None]
